FAERS Safety Report 21910988 (Version 1)
Quarter: 2023Q1

REPORT INFORMATION
  Report Type: Spontaneous
  Country: US (occurrence: US)
  Receive Date: 20230125
  Receipt Date: 20230125
  Transmission Date: 20230418
  Serious: Yes (Other)
  Sender: FDA-Public Use
  Company Number: US-009507513-2301USA007067

PATIENT
  Age: 65 Year
  Sex: Female

DRUGS (4)
  1. TEMODAR [Suspect]
     Active Substance: TEMOZOLOMIDE
     Indication: Glioblastoma
     Dosage: 75 MILLIGRAM/M2
     Route: 048
     Dates: start: 20221104, end: 20221209
  2. KEPPRA [Concomitant]
     Active Substance: LEVETIRACETAM
  3. ENTECAVIR [Concomitant]
     Active Substance: ENTECAVIR
  4. DAPSONE [Concomitant]
     Active Substance: DAPSONE

REACTIONS (2)
  - Neutropenia [Recovered/Resolved]
  - Platelet count decreased [Unknown]

NARRATIVE: CASE EVENT DATE: 20230101
